FAERS Safety Report 15344264 (Version 1)
Quarter: 2018Q3

REPORT INFORMATION
  Report Type: Spontaneous
  Country: US (occurrence: US)
  Receive Date: 20180903
  Receipt Date: 20180903
  Transmission Date: 20181010
  Serious: No
  Sender: FDA-Public Use
  Company Number: US-BAUSCH-BL-2018-023362

PATIENT
  Sex: Female

DRUGS (2)
  1. ARESTIN [Suspect]
     Active Substance: MINOCYCLINE HYDROCHLORIDE
     Indication: PERIODONTITIS
     Route: 065
     Dates: start: 20180817
  2. ZYRTEC [Concomitant]
     Active Substance: CETIRIZINE HYDROCHLORIDE
     Indication: PRODUCT USED FOR UNKNOWN INDICATION

REACTIONS (4)
  - Facial pain [Not Recovered/Not Resolved]
  - Gingival swelling [Recovered/Resolved]
  - Swelling face [Not Recovered/Not Resolved]
  - Palatal swelling [Recovered/Resolved]

NARRATIVE: CASE EVENT DATE: 20180817
